FAERS Safety Report 8396480-X (Version None)
Quarter: 2012Q2

REPORT INFORMATION
  Report Type: 
  Country: None (occurrence: None)
  Receive Date: 20120530
  Receipt Date: 20120518
  Transmission Date: 20120825
  Serious: Yes (Death, Life-Threatening, Other)
  Sender: FDA-Public Use
  Company Number: PL-ACTELION-A-CH2012-66053

PATIENT
  Sex: Female
  Weight: 58 kg

DRUGS (12)
  1. TRACLEER [Suspect]
     Dosage: 62.5 MG, BID
     Route: 048
     Dates: start: 20111230
  2. SPIRONOL [Concomitant]
  3. SILDENAFIL [Concomitant]
     Dosage: UNK
  4. RAMIPRIL [Concomitant]
  5. TRACLEER [Suspect]
     Dosage: 62.5 MG, BID
     Route: 048
     Dates: start: 20110601
  6. TRACLEER [Suspect]
     Indication: PULMONARY ARTERIAL HYPERTENSION
     Dosage: 125 MG, BID
     Route: 048
     Dates: start: 20120201, end: 20120422
  7. PLAQUENIL [Concomitant]
  8. DIGOXIN [Concomitant]
  9. WARFARIN SODIUM [Concomitant]
  10. OSTENIL [Concomitant]
  11. PREDNISONE [Concomitant]
  12. FUROSEMIDE [Concomitant]

REACTIONS (6)
  - SYSTEMIC SCLEROSIS [None]
  - RESPIRATORY FAILURE [None]
  - CONCOMITANT DISEASE AGGRAVATED [None]
  - RIGHT VENTRICULAR FAILURE [None]
  - ANAEMIA [None]
  - DIGITAL ULCER [None]
